FAERS Safety Report 17706127 (Version 7)
Quarter: 2022Q4

REPORT INFORMATION
  Report Type: Report from Study
  Country: DE (occurrence: DE)
  Receive Date: 20200424
  Receipt Date: 20221207
  Transmission Date: 20230113
  Serious: Yes (Hospitalization)
  Sender: FDA-Public Use
  Company Number: DE-JNJFOC-20191210641

PATIENT
  Age: 4 Decade
  Sex: Female

DRUGS (1)
  1. SIMPONI [Suspect]
     Active Substance: GOLIMUMAB
     Indication: Axial spondyloarthritis
     Route: 058
     Dates: start: 20190321

REACTIONS (15)
  - Back pain [Recovered/Resolved]
  - Arthralgia [Recovered/Resolved]
  - Rotator cuff syndrome [Unknown]
  - Spinal osteoarthritis [Unknown]
  - Intervertebral disc protrusion [Not Recovered/Not Resolved]
  - Neuralgia [Unknown]
  - Oral herpes [Unknown]
  - Fatigue [Unknown]
  - Musculoskeletal pain [Unknown]
  - Paranasal sinus inflammation [Unknown]
  - Osteoarthritis [Unknown]
  - Chronic gastritis [Unknown]
  - Fall [Unknown]
  - Head injury [Unknown]
  - COVID-19 [Unknown]

NARRATIVE: CASE EVENT DATE: 20190426
